FAERS Safety Report 8928795 (Version 1)
Quarter: 2012Q4

REPORT INFORMATION
  Report Type: Spontaneous
  Country: US (occurrence: None)
  Receive Date: 20121126
  Receipt Date: 20121126
  Transmission Date: 20130627
  Serious: Yes (Disabling)
  Sender: FDA-Public Use
  Company Number: None

PATIENT
  Age: 56 Year
  Sex: Male
  Weight: 90.72 kg

DRUGS (1)
  1. LAMOTRIGINE [Suspect]
     Indication: DEPRESSION

REACTIONS (2)
  - Tinnitus [None]
  - Deafness unilateral [None]
